FAERS Safety Report 5412968-5 (Version None)
Quarter: 2007Q3

REPORT INFORMATION
  Report Type: 
  Country: None (occurrence: None)
  Receive Date: 20070809
  Receipt Date: 20070802
  Transmission Date: 20080115
  Serious: Yes (Other)
  Sender: FDA-Public Use
  Company Number: 2007SP003265

PATIENT
  Age: 32 Year
  Sex: Female

DRUGS (3)
  1. DESLORATADINE [Suspect]
     Indication: URTICARIA
     Dosage: 5 MG;PRN;PO, 5 MG;AD;PO, 5 MG;QD;PO
     Route: 048
     Dates: start: 20060201, end: 20060501
  2. DESLORATADINE [Suspect]
     Indication: URTICARIA
     Dosage: 5 MG;PRN;PO, 5 MG;AD;PO, 5 MG;QD;PO
     Route: 048
     Dates: start: 20060501, end: 20060601
  3. DESLORATADINE [Suspect]
     Indication: URTICARIA
     Dosage: 5 MG;PRN;PO, 5 MG;AD;PO, 5 MG;QD;PO
     Route: 048
     Dates: start: 20060801, end: 20070201

REACTIONS (2)
  - HEARING IMPAIRED [None]
  - TINNITUS [None]
